FAERS Safety Report 8549570 (Version 2)
Quarter: 2012Q4

REPORT INFORMATION
  Report Type: 
  Country: BR (occurrence: BR)
  Receive Date: 20120507
  Receipt Date: 20121022
  Transmission Date: 20130627
  Serious: Yes (Other)
  Sender: FDA-Public Use
  Company Number: BR-ASTRAZENECA-2012SE27649

PATIENT
  Age: 69 Year
  Sex: Male
  Weight: 54 kg

DRUGS (7)
  1. NEXIUM [Suspect]
     Indication: GASTRITIS
     Route: 048
     Dates: start: 201008, end: 201203
  2. NEXIUM [Suspect]
     Indication: HIATUS HERNIA
     Route: 048
     Dates: start: 201008, end: 201203
  3. NEXIUM [Suspect]
     Indication: GASTRITIS
     Route: 048
     Dates: start: 201203
  4. NEXIUM [Suspect]
     Indication: HIATUS HERNIA
     Route: 048
     Dates: start: 201203
  5. BUDESONIDE [Suspect]
     Indication: NASAL POLYPS
     Route: 045
     Dates: start: 2011, end: 201204
  6. ZESTRIL [Suspect]
     Indication: HYPERTENSION
     Route: 048
     Dates: start: 1998, end: 2002
  7. ARADOIS [Concomitant]
     Indication: HYPERTENSION
     Route: 048
     Dates: start: 2002

REACTIONS (5)
  - Nasal polyps [Recovering/Resolving]
  - Blood cholesterol increased [Unknown]
  - Serum ferritin increased [Recovered/Resolved]
  - Dyspepsia [Recovered/Resolved]
  - Dry throat [Recovered/Resolved]
